FAERS Safety Report 16609304 (Version 1)
Quarter: 2019Q3

REPORT INFORMATION
  Report Type: Spontaneous
  Country: US (occurrence: US)
  Receive Date: 20190720
  Receipt Date: 20190720
  Transmission Date: 20191004
  Serious: No
  Sender: FDA-Public Use
  Company Number: None

PATIENT
  Age: 65 Year
  Sex: Female
  Weight: 108 kg

DRUGS (3)
  1. TYLENOL [Concomitant]
     Active Substance: ACETAMINOPHEN
  2. IMIQUIMOD CREAM 5% [Suspect]
     Active Substance: IMIQUIMOD
     Indication: SQUAMOUS CELL CARCINOMA
     Dosage: ?          QUANTITY:6 6 PACKETS;?
     Route: 061
     Dates: start: 20190603, end: 20190607
  3. DO TERRA [Concomitant]

REACTIONS (22)
  - Syncope [None]
  - Cough [None]
  - Swelling [None]
  - Photosensitivity reaction [None]
  - Paraesthesia [None]
  - Palpitations [None]
  - Migraine [None]
  - Lymphadenopathy [None]
  - Cardiac flutter [None]
  - Headache [None]
  - Dizziness [None]
  - Tremor [None]
  - Pain of skin [None]
  - Chills [None]
  - Dyspnoea [None]
  - Myalgia [None]
  - Arthralgia [None]
  - Abdominal mass [None]
  - Nodule [None]
  - Tenderness [None]
  - Malaise [None]
  - Back pain [None]

NARRATIVE: CASE EVENT DATE: 20190607
